FAERS Safety Report 6621635-1 (Version None)
Quarter: 2010Q1

REPORT INFORMATION
  Report Type: 
  Country: None (occurrence: None)
  Receive Date: 20100223
  Receipt Date: 20091105
  Transmission Date: 20100710
  Serious: No
  Sender: FDA-Public Use
  Company Number: 8054269

PATIENT
  Sex: Female

DRUGS (1)
  1. CERTOLIZUMAB PEGOL (UCB, INC) [Suspect]
     Dosage: (400 MG, ONCE MONTHLY SUBCUTANEOUS)
     Route: 058
     Dates: start: 20090603

REACTIONS (3)
  - CHILLS [None]
  - COLD SWEAT [None]
  - PAIN [None]
